FAERS Safety Report 19118128 (Version 2)
Quarter: 2021Q2

REPORT INFORMATION
  Report Type: Report from Study
  Country: US (occurrence: US)
  Receive Date: 20210410
  Receipt Date: 20210421
  Transmission Date: 20210717
  Serious: Yes (Other)
  Sender: FDA-Public Use
  Company Number: NVSC2021US074833

PATIENT
  Sex: Male

DRUGS (1)
  1. ENTRESTO [Suspect]
     Active Substance: SACUBITRIL\VALSARTAN
     Indication: CHRONIC LEFT VENTRICULAR FAILURE
     Dosage: 0.5 DF, BID (24?26MG)
     Route: 065

REACTIONS (3)
  - Myocardial infarction [Unknown]
  - Product prescribing error [Unknown]
  - Wrong technique in product usage process [Unknown]
